FAERS Safety Report 5466227-5 (Version None)
Quarter: 2007Q3

REPORT INFORMATION
  Report Type: 
  Country: None (occurrence: None)
  Receive Date: 20070919
  Receipt Date: 20070910
  Transmission Date: 20080115
  Serious: Yes (Death)
  Sender: FDA-Public Use
  Company Number: 2007AL003754

PATIENT
  Age: 85 Year
  Sex: Female

DRUGS (6)
  1. METFORMIN HYDROCHLORIDE [Suspect]
     Dosage: 500 MG; QD; PO
     Route: 048
  2. CARBIDOPA AND LEVODOPA [Concomitant]
  3. AMANTADINE HCL [Concomitant]
  4. CARBASALATE CALCIUM [Concomitant]
  5. PERINDOPRIL ERBUMINE [Concomitant]
  6. GLYBURIDE [Concomitant]

REACTIONS (13)
  - AORTIC ANEURYSM [None]
  - BLOOD GLUCOSE INCREASED [None]
  - BLOOD PRESSURE INCREASED [None]
  - CONSTIPATION [None]
  - DELIRIUM [None]
  - DYSPNOEA [None]
  - FAECALOMA [None]
  - FALL [None]
  - HAEMODIALYSIS [None]
  - HEART RATE INCREASED [None]
  - INTESTINAL ISCHAEMIA [None]
  - LACTIC ACIDOSIS [None]
  - UROSEPSIS [None]
